FAERS Safety Report 5053607-5 (Version None)
Quarter: 2006Q3

REPORT INFORMATION
  Report Type: 
  Country: None (occurrence: None)
  Receive Date: 20060718
  Receipt Date: 20060606
  Transmission Date: 20061208
  Serious: Yes (Hospitalization, Other)
  Sender: FDA-Public Use
  Company Number: PHNU2006DE02171

PATIENT
  Sex: Male

DRUGS (1)
  1. ZOMETA [Suspect]
     Indication: PROPHYLAXIS
     Dosage: 4 MG, QMO
     Dates: start: 19980101, end: 20050101

REACTIONS (13)
  - ACTIVITIES OF DAILY LIVING IMPAIRED [None]
  - DENTAL DISCOMFORT [None]
  - MANDIBULECTOMY [None]
  - ORAL INTAKE REDUCED [None]
  - ORAL SURGERY [None]
  - OSTEOMYELITIS [None]
  - OSTEONECROSIS [None]
  - OSTEOSYNTHESIS [None]
  - PAIN IN JAW [None]
  - PURULENT DISCHARGE [None]
  - SOFT TISSUE DISORDER [None]
  - TOOTH EXTRACTION [None]
  - TOOTH LOSS [None]
